FAERS Safety Report 11052435 (Version 1)
Quarter: 2015Q2

REPORT INFORMATION
  Report Type: Spontaneous
  Country: DE (occurrence: DE)
  Receive Date: 20150421
  Receipt Date: 20150421
  Transmission Date: 20150821
  Serious: Yes (Hospitalization)
  Sender: FDA-Public Use
  Company Number: DE-TAKEDA-2015TUS005160

PATIENT
  Sex: Male

DRUGS (3)
  1. ADENURIC [Suspect]
     Active Substance: FEBUXOSTAT
     Indication: HYPERURICAEMIA
     Dosage: UNK
     Route: 048
     Dates: start: 201310, end: 201409
  2. VOLTAREN [Concomitant]
     Active Substance: DICLOFENAC SODIUM
  3. METOPROLOL [Concomitant]
     Active Substance: METOPROLOL

REACTIONS (3)
  - Platelet count increased [Recovered/Resolved]
  - Anaemia [Recovered/Resolved]
  - Gastrointestinal disorder [Recovered/Resolved]

NARRATIVE: CASE EVENT DATE: 201409
